FAERS Safety Report 17106417 (Version 1)
Quarter: 2019Q4

REPORT INFORMATION
  Report Type: Spontaneous
  Country: US (occurrence: US)
  Receive Date: 20191203
  Receipt Date: 20191203
  Transmission Date: 20200122
  Serious: No
  Sender: FDA-Public Use
  Company Number: US-VERTEX PHARMACEUTICALS-2019-011763

PATIENT
  Age: 32 Year
  Sex: Male

DRUGS (19)
  1. AZITHROMYCIN ANHYDROUS. [Concomitant]
     Active Substance: AZITHROMYCIN ANHYDROUS
  2. FLUTICASONE. [Concomitant]
     Active Substance: FLUTICASONE
  3. SEROQUEL [Concomitant]
     Active Substance: QUETIAPINE FUMARATE
  4. AMLODIPINE [Concomitant]
     Active Substance: AMLODIPINE BESYLATE
  5. LANTUS [Concomitant]
     Active Substance: INSULIN GLARGINE
  6. SODIUM CHLORIDE. [Concomitant]
     Active Substance: SODIUM CHLORIDE
  7. ACTOS [Concomitant]
     Active Substance: PIOGLITAZONE HYDROCHLORIDE
  8. TRIKAFTA [Suspect]
     Active Substance: ELEXACAFTOR\IVACAFTOR\TEZACAFTOR
     Indication: CYSTIC FIBROSIS
     Dosage: 2 TABS (100 MG ELEXA/50 MG TEZA/ 75 MG IVA) AM AND 1 TAB (150 MG IVA) PM
     Route: 048
     Dates: start: 20191114
  9. FLUVOXAMINE [Concomitant]
     Active Substance: FLUVOXAMINE
  10. POLYETHYLENE GLYCOL [Concomitant]
     Active Substance: POLYETHYLENE GLYCOLS
  11. HUMALOG [Concomitant]
     Active Substance: INSULIN LISPRO
  12. IPRATROPIUM [Concomitant]
     Active Substance: IPRATROPIUM
  13. LORAZEPAM. [Concomitant]
     Active Substance: LORAZEPAM
  14. LOSARTAN. [Concomitant]
     Active Substance: LOSARTAN
  15. TOBRAMYCIN. [Concomitant]
     Active Substance: TOBRAMYCIN
  16. ALBUTEROL [SALBUTAMOL] [Concomitant]
     Active Substance: ALBUTEROL
  17. CREON [Concomitant]
     Active Substance: PANCRELIPASE AMYLASE\PANCRELIPASE LIPASE\PANCRELIPASE PROTEASE
  18. LEVITRA [Concomitant]
     Active Substance: VARDENAFIL HYDROCHLORIDE
  19. PULMOZYME [Concomitant]
     Active Substance: DORNASE ALFA

REACTIONS (1)
  - Diarrhoea [Unknown]

NARRATIVE: CASE EVENT DATE: 201911
